FAERS Safety Report 15559106 (Version 1)
Quarter: 2018Q4

REPORT INFORMATION
  Report Type: Report from Study
  Country: US (occurrence: US)
  Receive Date: 20181029
  Receipt Date: 20181029
  Transmission Date: 20190205
  Serious: Yes (Other)
  Sender: FDA-Public Use
  Company Number: US-ROCHE-2205870

PATIENT
  Age: 11 Year
  Sex: Female
  Weight: 39.6 kg

DRUGS (11)
  1. COLISTIN [Concomitant]
     Active Substance: COLISTIN
     Route: 065
     Dates: start: 20160709, end: 20160716
  2. MIDAZOLAM [Concomitant]
     Active Substance: MIDAZOLAM HYDROCHLORIDE
     Route: 048
     Dates: start: 20150922
  3. ESTRADIOL. [Concomitant]
     Active Substance: ESTRADIOL
     Dosage: 1/4 PATCH, TOPICAL QMTH
     Route: 065
  4. SENNA [Concomitant]
     Active Substance: SENNA LEAF\SENNOSIDES\SENNOSIDES A AND B
     Route: 048
     Dates: start: 20161202
  5. NUTROPIN AQ [Suspect]
     Active Substance: SOMATROPIN
     Indication: TURNER^S SYNDROME
     Route: 058
  6. LEVOTHYROXINE. [Concomitant]
     Active Substance: LEVOTHYROXINE
     Route: 048
     Dates: start: 201708
  7. HYDROCORTISONE. [Concomitant]
     Active Substance: HYDROCORTISONE
     Dosage: 2 DROP, EAR RIGHT QID
     Route: 065
     Dates: start: 20160709, end: 20160716
  8. AMOXICILLIN/CLAVULANATE [Concomitant]
     Active Substance: AMOXICILLIN\CLAVULANATE POTASSIUM
     Route: 048
     Dates: start: 20160709, end: 20160716
  9. MORPHINE [Concomitant]
     Active Substance: MORPHINE
     Dosage: Q15M
     Route: 042
  10. GADOPENTETATE DIMEGLUMINE. [Concomitant]
     Active Substance: GADOPENTETATE DIMEGLUMINE
     Route: 042
     Dates: start: 20150519
  11. POLYETHYLENE GLYCOL [Concomitant]
     Active Substance: POLYETHYLENE GLYCOLS
     Route: 048
     Dates: start: 20161202

REACTIONS (4)
  - Asthenia [Unknown]
  - Cataract [Unknown]
  - Ovarian failure [Unknown]
  - Headache [Unknown]

NARRATIVE: CASE EVENT DATE: 201505
